FAERS Safety Report 11840915 (Version 5)
Quarter: 2016Q1

REPORT INFORMATION
  Report Type: Spontaneous
  Country: US (occurrence: US)
  Receive Date: 20151216
  Receipt Date: 20160223
  Transmission Date: 20160525
  Serious: Yes (Hospitalization, Other)
  Sender: FDA-Public Use
  Company Number: US-GLAXOSMITHKLINE-US2015GSK176751

PATIENT
  Sex: Female
  Weight: 13.2 kg

DRUGS (5)
  1. REMODULIN [Suspect]
     Active Substance: TREPROSTINIL
     Indication: PULMONARY ARTERIAL HYPERTENSION
     Dosage: 0.06 MCG/KG (60 NG/KG) CONTINUOUS
     Route: 042
     Dates: start: 20160123
  2. FLOLAN [Suspect]
     Active Substance: EPOPROSTENOL SODIUM
     Dosage: 38 DF, CO
     Dates: start: 20151123
  3. TRACLEER [Concomitant]
     Active Substance: BOSENTAN
  4. SILDENAFIL CITRATE. [Concomitant]
     Active Substance: SILDENAFIL CITRATE
  5. FLOLAN [Suspect]
     Active Substance: EPOPROSTENOL SODIUM
     Indication: PULMONARY ARTERIAL HYPERTENSION
     Dosage: 14 NG/KG/MIN, CO
     Dates: start: 20151123

REACTIONS (4)
  - Skin irritation [Unknown]
  - Flushing [Unknown]
  - Oxygen supplementation [Recovering/Resolving]
  - Catheter site inflammation [Unknown]
